FAERS Safety Report 18873977 (Version 3)
Quarter: 2021Q2

REPORT INFORMATION
  Report Type: Spontaneous
  Country: RU (occurrence: RU)
  Receive Date: 20210210
  Receipt Date: 20210405
  Transmission Date: 20210717
  Serious: Yes (Hospitalization)
  Sender: FDA-Public Use
  Company Number: RU-BAYER-2021-054176

PATIENT
  Age: 62 Year
  Sex: Female
  Weight: 95 kg

DRUGS (1)
  1. ANGELIQ [Suspect]
     Active Substance: DROSPIRENONE\ESTRADIOL
     Indication: OESTROGEN DEFICIENCY
     Dosage: UNK
     Route: 048
     Dates: start: 20210111, end: 20210122

REACTIONS (5)
  - Uterine haemorrhage [Recovered/Resolved]
  - Abdominal pain [None]
  - Breast engorgement [None]
  - Diarrhoea [None]
  - Endometrial thickening [None]

NARRATIVE: CASE EVENT DATE: 202101
